FAERS Safety Report 25552089 (Version 1)
Quarter: 2025Q3

REPORT INFORMATION
  Report Type: Spontaneous
  Country: US (occurrence: US)
  Receive Date: 20250715
  Receipt Date: 20250715
  Transmission Date: 20251021
  Serious: Yes (Other)
  Sender: ALEXION PHARMACEUTICALS
  Company Number: US-AstraZeneca-CH-00907593A

PATIENT
  Age: 74 Year
  Sex: Female

DRUGS (2)
  1. LYNPARZA [Suspect]
     Active Substance: OLAPARIB
     Route: 065
  2. AVASTIN [Concomitant]
     Active Substance: BEVACIZUMAB
     Route: 065

REACTIONS (8)
  - Neoplasm malignant [Unknown]
  - Tumour marker abnormal [Unknown]
  - Immunisation reaction [Unknown]
  - Full blood count abnormal [Unknown]
  - Tumour marker increased [Unknown]
  - Tumour marker decreased [Unknown]
  - Lymphadenopathy [Unknown]
  - Drug ineffective [Unknown]

NARRATIVE: CASE EVENT DATE: 20220701
